FAERS Safety Report 10187205 (Version 1)
Quarter: 2014Q2

REPORT INFORMATION
  Report Type: Spontaneous
  Country: US (occurrence: US)
  Receive Date: 20140522
  Receipt Date: 20140522
  Transmission Date: 20141212
  Serious: No
  Sender: FDA-Public Use
  Company Number: US-009507513-1405USA011177

PATIENT
  Age: 7 Year
  Sex: 0

DRUGS (2)
  1. CLARITIN CHEWABLE TABLETS [Suspect]
     Indication: HYPERSENSITIVITY
     Dosage: UNK, UNKNOWN
     Route: 048
  2. CLARITIN CHEWABLE TABLETS [Suspect]
     Indication: NASOPHARYNGITIS

REACTIONS (3)
  - Drug effect decreased [Unknown]
  - Therapeutic response changed [Unknown]
  - Off label use [Unknown]
